FAERS Safety Report 7743184-X (Version None)
Quarter: 2011Q3

REPORT INFORMATION
  Report Type: 
  Country: None (occurrence: None)
  Receive Date: 20110825
  Receipt Date: 20110811
  Transmission Date: 20111222
  Serious: Yes (Other)
  Sender: FDA-Public Use
  Company Number: 2009SP023524

PATIENT
  Age: 22 Year
  Sex: Female
  Weight: 85.7298 kg

DRUGS (3)
  1. NUVARING [Suspect]
     Indication: CONTRACEPTION
     Dosage: VAG
     Route: 067
     Dates: start: 20070801
  2. NUVARING [Suspect]
     Indication: CONTRACEPTION
     Dosage: VAG
     Route: 067
     Dates: start: 20080301, end: 20080801
  3. ORAL CONTRACEPTIVES [Suspect]
     Indication: ORAL CONTRACEPTION
     Dates: end: 20080801

REACTIONS (22)
  - PRODUCTIVE COUGH [None]
  - ABDOMINAL PAIN [None]
  - ABORTION SPONTANEOUS [None]
  - HAEMORRHAGIC ANAEMIA [None]
  - PYREXIA [None]
  - INFLUENZA LIKE ILLNESS [None]
  - HYPERCOAGULATION [None]
  - OVARIAN CYST [None]
  - MATERNAL EXPOSURE BEFORE PREGNANCY [None]
  - NASOPHARYNGITIS [None]
  - WHEEZING [None]
  - MENORRHAGIA [None]
  - AMENORRHOEA [None]
  - NAUSEA [None]
  - DYSPNOEA [None]
  - RHINORRHOEA [None]
  - PULMONARY EMBOLISM [None]
  - THROMBOSIS [None]
  - ABORTION MISSED [None]
  - PREGNANCY [None]
  - CHEST PAIN [None]
  - OROPHARYNGEAL PAIN [None]
